FAERS Safety Report 18000391 (Version 1)
Quarter: 2020Q3

REPORT INFORMATION
  Report Type: Spontaneous
  Country: US (occurrence: US)
  Receive Date: 20200709
  Receipt Date: 20200709
  Transmission Date: 20201103
  Serious: Yes (Other)
  Sender: FDA-Public Use
  Company Number: US-ASSERTIO THERAPEUTICS, INC.-US-2020DEP000259

PATIENT
  Sex: Female

DRUGS (1)
  1. CAMBIA [Suspect]
     Active Substance: DICLOFENAC POTASSIUM
     Indication: PRODUCT USED FOR UNKNOWN INDICATION
     Dosage: MIX ONE PACKET WITH 1?2 OUNCES OF WATER. DRINK IMMEDIATELY AS A SINGLE DOSE.
     Route: 048

REACTIONS (1)
  - Appendicitis [Recovered/Resolved]
